FAERS Safety Report 7518625-3 (Version None)
Quarter: 2011Q2

REPORT INFORMATION
  Report Type: 
  Country: None (occurrence: None)
  Receive Date: 20110523
  Receipt Date: 20110509
  Transmission Date: 20111010
  Serious: Yes (Hospitalization, Other)
  Sender: FDA-Public Use
  Company Number: 2011MA005609

PATIENT
  Age: 16 Year
  Sex: Female

DRUGS (2)
  1. FEVERALL [Suspect]
     Indication: SUICIDE ATTEMPT
     Dosage: 8; G; 1X; PO
     Route: 048
  2. AMOXICILLIN [Concomitant]

REACTIONS (10)
  - INTENTIONAL DRUG MISUSE [None]
  - ASPARTATE AMINOTRANSFERASE INCREASED [None]
  - TOXICITY TO VARIOUS AGENTS [None]
  - BLOOD LACTATE DEHYDROGENASE INCREASED [None]
  - ABDOMINAL PAIN [None]
  - BLOOD GLUCOSE INCREASED [None]
  - NAUSEA [None]
  - BLOOD ALKALINE PHOSPHATASE INCREASED [None]
  - PROTHROMBIN TIME PROLONGED [None]
  - SUICIDE ATTEMPT [None]
